FAERS Safety Report 23062447 (Version 2)
Quarter: 2023Q4

REPORT INFORMATION
  Report Type: Spontaneous
  Country: JP (occurrence: JP)
  Receive Date: 20231013
  Receipt Date: 20231127
  Transmission Date: 20240109
  Serious: Yes (Death)
  Sender: FDA-Public Use
  Company Number: JP-BEH-2023164085

PATIENT
  Age: 4 Decade
  Sex: Male

DRUGS (1)
  1. HUMAN IMMUNOGLOBULIN G [Suspect]
     Active Substance: HUMAN IMMUNOGLOBULIN G
     Indication: Product used for unknown indication
     Route: 042

REACTIONS (5)
  - Anaphylactic reaction [Fatal]
  - Malaise [Fatal]
  - General physical health deterioration [Fatal]
  - Pulmonary oedema [Fatal]
  - Type I hypersensitivity [Fatal]
